FAERS Safety Report 5918392-0 (Version None)
Quarter: 2008Q4

REPORT INFORMATION
  Report Type: 
  Country: None (occurrence: None)
  Receive Date: 20081015
  Receipt Date: 20081006
  Transmission Date: 20090506
  Serious: Yes (Hospitalization, Disabling)
  Sender: FDA-Public Use
  Company Number: JP-SP-2008-00777

PATIENT
  Age: 74 Year
  Sex: Male

DRUGS (3)
  1. IMMUCYST [Suspect]
     Indication: BLADDER CANCER
     Route: 043
     Dates: start: 20080220, end: 20080319
  2. IMMUCYST [Suspect]
     Route: 043
     Dates: start: 20080220, end: 20080319
  3. IRON AGENT [Concomitant]
     Dates: start: 20080101, end: 20080312

REACTIONS (3)
  - ABDOMINAL PAIN LOWER [None]
  - EPIDIDYMITIS [None]
  - SCROTAL ABSCESS [None]
